FAERS Safety Report 6873788-8 (Version None)
Quarter: 2010Q3

REPORT INFORMATION
  Report Type: 
  Country: None (occurrence: None)
  Receive Date: 20100723
  Receipt Date: 20090620
  Transmission Date: 20110219
  Serious: No
  Sender: FDA-Public Use
  Company Number: US-PFIZER INC-2009171192

PATIENT
  Sex: Male

DRUGS (6)
  1. CHANTIX [Suspect]
  2. INSULIN [Concomitant]
     Dosage: UNK
  3. INSULIN GLARGINE [Concomitant]
     Dosage: UNK
  4. CARDIZEM [Concomitant]
     Dosage: UNK
  5. FOLIC ACID [Concomitant]
     Dosage: UNK
  6. THIAMINE [Concomitant]
     Dosage: UNK

REACTIONS (7)
  - ANGER [None]
  - DEPRESSION [None]
  - FATIGUE [None]
  - MOOD ALTERED [None]
  - PERSONALITY CHANGE [None]
  - SCREAMING [None]
  - THINKING ABNORMAL [None]
